FAERS Safety Report 9396608 (Version 1)
Quarter: 2013Q3

REPORT INFORMATION
  Report Type: Spontaneous
  Country: US (occurrence: US)
  Receive Date: 20130711
  Receipt Date: 20130711
  Transmission Date: 20140515
  Serious: Yes (Hospitalization, Other)
  Sender: FDA-Public Use
  Company Number: US-UCBSA-091056

PATIENT
  Age: 16 Year
  Sex: Female
  Weight: 41 kg

DRUGS (16)
  1. KEPPRA [Suspect]
     Indication: EPILEPSY
     Dosage: 500 MG - 3 TABLETS
     Route: 048
     Dates: start: 20090616, end: 20130410
  2. KEPPRA [Suspect]
     Indication: EPILEPSY
     Dosage: 500 MG - 3 TABLETS
     Route: 048
     Dates: start: 20130411, end: 20130411
  3. KEPPRA [Suspect]
     Indication: EPILEPSY
     Dosage: 500 MG  - 3 TABLETS
     Route: 048
     Dates: start: 20130412
  4. PERAMPANEL [Suspect]
     Indication: GRAND MAL CONVULSION
     Dosage: CORE STUDY: 2 MG/DAY WITH WEEKLY UP-TITRATION TO TARGET DOSE RANGE OF 8 MG/DAY.
     Dates: start: 20121107, end: 2013
  5. PERAMPANEL [Suspect]
     Indication: GRAND MAL CONVULSION
     Dosage: CORE STUDY: 2 MG/DAY WITH WEEKLY UP-TITRATION TO TARGET DOSE RANGE OF 8 MG/DAY.
     Dates: start: 20121107, end: 2013
  6. PERAMPANEL [Suspect]
     Indication: GRAND MAL CONVULSION
     Dosage: OPEN LABEL
     Dates: start: 2013
  7. PERAMPANEL [Suspect]
     Indication: GRAND MAL CONVULSION
     Dosage: OPEN LABEL
     Dates: start: 2013
  8. CELEXA [Concomitant]
     Indication: AFFECTIVE DISORDER
     Route: 048
     Dates: start: 20130310, end: 20130316
  9. CELEXA [Concomitant]
     Indication: AFFECTIVE DISORDER
     Route: 048
     Dates: start: 20130317, end: 20130417
  10. DIAMOX [Concomitant]
     Indication: EPILEPSY
     Route: 048
     Dates: start: 20120208
  11. LAMICTAL [Concomitant]
     Indication: EPILEPSY
     Route: 048
     Dates: start: 201003
  12. POTASSIUM CITRATE [Concomitant]
     Indication: HYPERCALCIURIA
     Route: 048
     Dates: start: 20120829
  13. MULTIVITAMINS [Concomitant]
     Indication: PROPHYLAXIS
     Dosage: 1 TABLET
     Route: 048
     Dates: start: 2011
  14. MIRALAX [Concomitant]
     Indication: CONSTIPATION
     Route: 048
     Dates: start: 20120626
  15. CYPROHEPTADINE [Concomitant]
     Indication: DECREASED APPETITE
     Route: 048
     Dates: start: 20120625
  16. REMERON [Concomitant]
     Indication: ANXIETY
     Route: 048
     Dates: start: 20120628, end: 20130328

REACTIONS (3)
  - Convulsion [Recovered/Resolved]
  - Mental status changes [Recovered/Resolved]
  - Drug dose omission [Unknown]
